FAERS Safety Report 15822923 (Version 1)
Quarter: 2019Q1

REPORT INFORMATION
  Report Type: Spontaneous
  Country: TW (occurrence: TW)
  Receive Date: 20190114
  Receipt Date: 20190114
  Transmission Date: 20190417
  Serious: Yes (Death)
  Sender: FDA-Public Use
  Company Number: TW-CASPER PHARMA LLC-2018CAS000416

PATIENT
  Age: 70 Year
  Sex: Female

DRUGS (1)
  1. BISMUTH, METRONIDAZOLE, TETRACYCLIN [Suspect]
     Active Substance: BISMUTH SUBSALICYLATE\METRONIDAZOLE\TETRACYCLINE HYDROCHLORIDE
     Indication: INFECTION PROPHYLAXIS
     Dosage: TOTAL DOSE: 41.25 GRAM
     Route: 065

REACTIONS (2)
  - Toxic encephalopathy [Fatal]
  - Product use in unapproved indication [Unknown]
